FAERS Safety Report 23094421 (Version 2)
Quarter: 2023Q4

REPORT INFORMATION
  Report Type: Spontaneous
  Country: US (occurrence: US)
  Receive Date: 20231023
  Receipt Date: 20231026
  Transmission Date: 20240110
  Serious: No
  Sender: FDA-Public Use
  Company Number: US-JNJFOC-20231009176

PATIENT
  Age: 73 Year
  Sex: Female
  Weight: 55.8 kg

DRUGS (6)
  1. TYLENOL [Suspect]
     Active Substance: ACETAMINOPHEN
     Indication: Headache
     Route: 065
     Dates: start: 202309
  2. TYVASO [Concomitant]
     Active Substance: TREPROSTINIL
     Indication: Pulmonary arterial hypertension
     Route: 055
  3. TYVASO [Concomitant]
     Active Substance: TREPROSTINIL
     Route: 055
     Dates: start: 202309
  4. TYVASO [Concomitant]
     Active Substance: TREPROSTINIL
     Route: 055
  5. TYVASO [Concomitant]
     Active Substance: TREPROSTINIL
     Route: 055
  6. OFEV [Concomitant]
     Active Substance: NINTEDANIB
     Indication: Product used for unknown indication
     Route: 065

REACTIONS (1)
  - Therapeutic product effect incomplete [Unknown]

NARRATIVE: CASE EVENT DATE: 20230901
